FAERS Safety Report 16160667 (Version 2)
Quarter: 2019Q2

REPORT INFORMATION
  Report Type: Spontaneous
  Country: US (occurrence: US)
  Receive Date: 20190405
  Receipt Date: 20190521
  Transmission Date: 20190711
  Serious: No
  Sender: FDA-Public Use
  Company Number: US-ASTRAZENECA-2019SE39067

PATIENT
  Sex: Female
  Weight: 67.6 kg

DRUGS (1)
  1. BEVESPI AEROSPHERE [Suspect]
     Active Substance: FORMOTEROL FUMARATE\GLYCOPYRROLATE
     Indication: CHRONIC OBSTRUCTIVE PULMONARY DISEASE
     Dosage: 9/4.8 MCG, 1 PUFF DAILY
     Route: 055

REACTIONS (6)
  - Wrong technique in product usage process [Unknown]
  - Cough [Unknown]
  - Off label use [Not Recovered/Not Resolved]
  - Device issue [Unknown]
  - Visual impairment [Unknown]
  - Product dose omission [Not Recovered/Not Resolved]
